FAERS Safety Report 6197360-0 (Version None)
Quarter: 2009Q2

REPORT INFORMATION
  Report Type: 
  Country: None (occurrence: None)
  Receive Date: 20090518
  Receipt Date: 20090510
  Transmission Date: 20091009
  Serious: Yes (Hospitalization)
  Sender: FDA-Public Use
  Company Number: 2009SP002349

PATIENT
  Age: 73 Year
  Sex: Female
  Weight: 77.1115 kg

DRUGS (2)
  1. PEG-INTRON [Suspect]
     Indication: HEPATITIS C
     Dates: start: 20080723
  2. RIBAVIRIN [Suspect]
     Indication: HEPATITIS C
     Dates: start: 20080723

REACTIONS (12)
  - ANAEMIA [None]
  - ASTHENIA [None]
  - ASTHMA [None]
  - BRONCHITIS [None]
  - CONDITION AGGRAVATED [None]
  - CONFUSIONAL STATE [None]
  - DEHYDRATION [None]
  - FATIGUE [None]
  - HYPOPHAGIA [None]
  - LOSS OF CONSCIOUSNESS [None]
  - NAUSEA [None]
  - WEIGHT DECREASED [None]
